FAERS Safety Report 4502879-1 (Version None)
Quarter: 2004Q4

REPORT INFORMATION
  Report Type: 
  Country: None (occurrence: None)
  Receive Date: 20041117
  Receipt Date: 20041109
  Transmission Date: 20050328
  Serious: Yes (Other)
  Sender: FDA-Public Use
  Company Number: US-ABBOTT-04P-163-0280106-00

PATIENT
  Sex: Female

DRUGS (7)
  1. TARKA [Suspect]
     Indication: HYPERTENSION
     Route: 048
     Dates: start: 20041027, end: 20041029
  2. TARKA [Suspect]
     Route: 048
     Dates: end: 20041102
  3. CELECOXIB [Concomitant]
     Indication: OSTEOARTHRITIS
     Route: 048
     Dates: start: 20030101
  4. CYPROHEPTADINE HYDROCHLORIDE [Concomitant]
     Indication: OSTEOPOROSIS
  5. LEVOTHYROXINE SODIUM [Concomitant]
     Indication: HYPOTHYROIDISM
     Dates: start: 19960101
  6. METOPROLOL [Concomitant]
     Indication: DRUG USE FOR UNKNOWN INDICATION
     Dates: start: 19960101
  7. RABEPRAZOLE SODIUM [Concomitant]
     Indication: GASTROOESOPHAGEAL REFLUX DISEASE
     Dates: start: 20030101

REACTIONS (4)
  - DIZZINESS [None]
  - FEELING ABNORMAL [None]
  - STOMACH DISCOMFORT [None]
  - UNEVALUABLE EVENT [None]
